FAERS Safety Report 9053941 (Version 1)
Quarter: 2013Q1

REPORT INFORMATION
  Report Type: Report from Study
  Country: GB (occurrence: GB)
  Receive Date: 20130208
  Receipt Date: 20130208
  Transmission Date: 20140127
  Serious: Yes (Hospitalization)
  Sender: FDA-Public Use
  Company Number: GB-AMGEN-GBRCT2012017378

PATIENT
  Age: 86 Year
  Sex: Male

DRUGS (7)
  1. DARBEPOETIN ALFA [Suspect]
     Indication: CARDIAC FAILURE
     Dates: start: 20111115
  2. LASIX [Concomitant]
     Dosage: 40 MG, QD
  3. BISOPROLOL [Concomitant]
     Dosage: 2.5 MG, QD
     Route: 048
  4. RAMIPRIL [Concomitant]
     Dosage: 2.5 MG, QD
     Route: 048
  5. DIGOXIN [Concomitant]
     Dosage: 125 MUG, UNK
     Route: 048
  6. PARACETAMOL [Concomitant]
     Dosage: 1 G, PRN
     Route: 048
  7. WARFARIN [Concomitant]
     Dosage: UNK UNK, QD
     Route: 048

REACTIONS (1)
  - Lower respiratory tract infection [Recovered/Resolved]
